FAERS Safety Report 14341463 (Version 2)
Quarter: 2018Q2

REPORT INFORMATION
  Report Type: Report from Study
  Country: US (occurrence: US)
  Receive Date: 20180102
  Receipt Date: 20180525
  Transmission Date: 20180711
  Serious: Yes (Other)
  Sender: FDA-Public Use
  Company Number: US-AMGEN-USASL2017191203

PATIENT
  Age: 86 Year
  Sex: Female

DRUGS (1)
  1. REPATHA [Suspect]
     Active Substance: EVOLOCUMAB
     Indication: BLOOD CHOLESTEROL INCREASED
     Dosage: 140 MG, Q2WK
     Route: 058

REACTIONS (7)
  - Atrial fibrillation [Unknown]
  - Red blood cell sedimentation rate increased [Unknown]
  - Chest discomfort [Unknown]
  - Increased tendency to bruise [Unknown]
  - Deafness bilateral [Unknown]
  - Cough [Unknown]
  - Malaise [Unknown]
